FAERS Safety Report 12716632 (Version 2)
Quarter: 2017Q2

REPORT INFORMATION
  Report Type: Spontaneous
  Country: CA (occurrence: CA)
  Receive Date: 20160906
  Receipt Date: 20170522
  Transmission Date: 20170830
  Serious: Yes (Other)
  Sender: FDA-Public Use
  Company Number: CA-PFIZER INC-2016320630

PATIENT
  Age: 77 Year
  Sex: Male

DRUGS (1)
  1. ADVIL [Suspect]
     Active Substance: IBUPROFEN
     Dosage: ONLY THE ONE

REACTIONS (4)
  - Dysphagia [Recovered/Resolved]
  - Choking [Recovered/Resolved]
  - Product use complaint [Recovered/Resolved]
  - Product size issue [Recovered/Resolved]
